FAERS Safety Report 18554585 (Version 5)
Quarter: 2021Q1

REPORT INFORMATION
  Report Type: Spontaneous
  Country: US (occurrence: US)
  Receive Date: 20201127
  Receipt Date: 20210107
  Transmission Date: 20210419
  Serious: Yes (Death, Hospitalization, Other)
  Sender: FDA-Public Use
  Company Number: US-009507513-2001USA005269

PATIENT
  Sex: Male
  Weight: 54.42 kg

DRUGS (8)
  1. KLOR?CON [Concomitant]
     Active Substance: POTASSIUM CHLORIDE
     Indication: HYPOKALAEMIA
     Dosage: 10 MEQ, 1 TABLET ONCE A DAY
     Route: 048
     Dates: start: 20180128, end: 20180204
  2. ZOSTAVAX [Suspect]
     Active Substance: VARICELLA-ZOSTER VIRUS STRAIN OKA/MERCK LIVE ANTIGEN
     Indication: PROPHYLAXIS
  3. ZOSTAVAX [Suspect]
     Active Substance: VARICELLA-ZOSTER VIRUS STRAIN OKA/MERCK LIVE ANTIGEN
     Indication: ROUTINE HEALTH MAINTENANCE
     Route: 058
     Dates: start: 20171002
  4. STERILE DILUENT (WATER) [Suspect]
     Active Substance: WATER
     Indication: PROPHYLAXIS
     Dosage: UNK
     Route: 058
     Dates: start: 20171002
  5. AMLODIPINE BESYLATE (+) BENAZEPRIL HYDROCHLORIDE [Concomitant]
     Active Substance: AMLODIPINE BESYLATE\BENAZEPRIL HYDROCHLORIDE
     Indication: HYPERTENSION
     Dosage: 5MG?20MG CAPSULE, 1 CAPSULE ONCE A DAY
     Route: 048
     Dates: start: 20061205, end: 20180124
  6. FLUZONE [Concomitant]
     Active Substance: INFLUENZA A VIRUS A/CALIFORNIA/7/2009 X-179A (H1N1) ANTIGEN (FORMALDEHYDE INACTIVATED)\INFLUENZA A VIRUS A/VICTORIA/210/2009 X-187 (H3N2) ANTIGEN (FORMALDEHYDE INACTIVATED)\INFLUENZA B VIRUS B/BRISBANE/60/2008 ANTIGEN (FORMALDEHYDE INACTIVATED)
     Indication: PROPHYLAXIS
     Dosage: 0.5 MILLILITER
     Route: 030
     Dates: start: 20171002
  7. PNEUMOVAX 23 [Suspect]
     Active Substance: PNEUMOCOCCAL VACCINE, POLYVALENT 23
     Indication: PROPHYLAXIS
     Dosage: .5 MILLILITER
     Route: 030
     Dates: start: 20171002
  8. MUCINEX [Concomitant]
     Active Substance: GUAIFENESIN
     Indication: CHRONIC OBSTRUCTIVE PULMONARY DISEASE
     Dosage: 1 OR 2 TABLETS AS NEEDED
     Route: 048
     Dates: start: 20040528, end: 20180204

REACTIONS (25)
  - Myocardial ischaemia [Unknown]
  - Dementia [Unknown]
  - Pneumothorax [Unknown]
  - Decubitus ulcer [Unknown]
  - Haematuria traumatic [Unknown]
  - Hypotension [Unknown]
  - Ventricular extrasystoles [Unknown]
  - Pericardial effusion [Unknown]
  - Constipation [Unknown]
  - Adverse event [Unknown]
  - Labelled drug-drug interaction medication error [Unknown]
  - Congestive cardiomyopathy [Fatal]
  - Cardiac failure congestive [Unknown]
  - Acute kidney injury [Unknown]
  - Gait disturbance [Unknown]
  - Muscular weakness [Unknown]
  - Atelectasis [Unknown]
  - Oedema peripheral [Unknown]
  - Fall [Unknown]
  - Pneumonia [Unknown]
  - Pleural effusion [Unknown]
  - Blood urine present [Unknown]
  - Dizziness [Unknown]
  - Failure to thrive [Unknown]
  - Mitral valve incompetence [Unknown]

NARRATIVE: CASE EVENT DATE: 20171002
